FAERS Safety Report 10713535 (Version 1)
Quarter: 2015Q1

REPORT INFORMATION
  Report Type: Spontaneous
  Country: IT (occurrence: IT)
  Receive Date: 20150115
  Receipt Date: 20150115
  Transmission Date: 20150721
  Serious: Yes (Hospitalization)
  Sender: FDA-Public Use
  Company Number: IT-MYLANLABS-2015M1000542

PATIENT

DRUGS (3)
  1. OLANZAPINE. [Suspect]
     Active Substance: OLANZAPINE
     Indication: SCHIZOAFFECTIVE DISORDER DEPRESSIVE TYPE
     Dosage: GRADUALLY INTRODUCED; REACHED A DOSE OF 20MG DAILY WITHIN 2W
     Route: 065
  2. VALPROATE [Concomitant]
     Active Substance: VALPROATE SODIUM
     Indication: SCHIZOAFFECTIVE DISORDER DEPRESSIVE TYPE
     Dosage: 800 MG, QD
     Route: 065
  3. VALPROATE [Concomitant]
     Active Substance: VALPROATE SODIUM
     Dosage: 400 MG, QD
     Route: 065

REACTIONS (6)
  - Suicidal ideation [Recovering/Resolving]
  - Terminal insomnia [Unknown]
  - Disturbance in attention [Unknown]
  - Depressed mood [Unknown]
  - Fatigue [Unknown]
  - Hallucination [Recovered/Resolved]
